FAERS Safety Report 13907642 (Version 1)
Quarter: 2017Q3

REPORT INFORMATION
  Report Type: Spontaneous
  Country: US (occurrence: US)
  Receive Date: 20170825
  Receipt Date: 20170825
  Transmission Date: 20171127
  Serious: No
  Sender: FDA-Public Use
  Company Number: US-ROCHE-1113636

PATIENT
  Sex: Female

DRUGS (4)
  1. NUTROPIN [Suspect]
     Active Substance: SOMATROPIN
     Indication: NOONAN SYNDROME
  2. NUTROPIN [Suspect]
     Active Substance: SOMATROPIN
     Indication: SILVER-RUSSELL SYNDROME
  3. NUTROPIN [Suspect]
     Active Substance: SOMATROPIN
     Indication: ALAGILLE SYNDROME
  4. NUTROPIN [Suspect]
     Active Substance: SOMATROPIN
     Indication: FACIODIGITOGENITAL DYSPLASIA

REACTIONS (1)
  - Injection site pain [Unknown]
